FAERS Safety Report 9997908 (Version 1)
Quarter: 2014Q1

REPORT INFORMATION
  Report Type: Spontaneous
  Country: US (occurrence: US)
  Receive Date: 20140311
  Receipt Date: 20140311
  Transmission Date: 20141002
  Serious: No
  Sender: FDA-Public Use
  Company Number: US-ENDO PHARMACEUTICALS INC.-TRAZ20130008

PATIENT
  Age: 48 Year
  Sex: Male

DRUGS (1)
  1. TRAZODONE HYDROCHLORIDE TABLETS 50MG [Suspect]
     Indication: PRODUCT USED FOR UNKNOWN INDICATION
     Route: 048
     Dates: start: 201309, end: 201309

REACTIONS (4)
  - Feeling hot [Unknown]
  - Aggression [Unknown]
  - Disturbance in attention [Unknown]
  - Intentional drug misuse [Unknown]
